FAERS Safety Report 13162271 (Version 1)
Quarter: 2017Q1

REPORT INFORMATION
  Report Type: Spontaneous
  Country: US (occurrence: US)
  Receive Date: 20170124
  Receipt Date: 20170124
  Transmission Date: 20170428
  Serious: Yes (Other)
  Sender: FDA-Public Use
  Company Number: None

PATIENT
  Age: 62 Year
  Sex: Male

DRUGS (4)
  1. ZYPREXA RELPREVV [Suspect]
     Active Substance: OLANZAPINE PAMOATE
     Indication: DELUSION
     Dosage: ?          OTHER FREQUENCY:EVERY 28 DAYS;?
     Route: 030
     Dates: start: 20160715, end: 20161118
  2. TERBINAFINE. [Concomitant]
     Active Substance: TERBINAFINE
  3. SUCRETS COUGH DROPS [Concomitant]
  4. VIITAMIN A + D OINTMENT [Concomitant]

REACTIONS (5)
  - Injection site swelling [None]
  - White blood cell count increased [None]
  - Injection site pain [None]
  - Pyrexia [None]
  - Chills [None]

NARRATIVE: CASE EVENT DATE: 20161205
